FAERS Safety Report 6628446-1 (Version None)
Quarter: 2010Q1

REPORT INFORMATION
  Report Type: 
  Country: None (occurrence: None)
  Receive Date: 20100311
  Receipt Date: 20100226
  Transmission Date: 20100710
  Serious: Yes (Other)
  Sender: FDA-Public Use
  Company Number: US-PFIZER INC-2009308957

PATIENT
  Sex: Female
  Weight: 97.506 kg

DRUGS (1)
  1. LYRICA [Suspect]
     Dosage: 50 MG, 2X/DAY
     Dates: start: 20091201, end: 20091207

REACTIONS (5)
  - BLOOD CREATININE INCREASED [None]
  - BLOOD UREA INCREASED [None]
  - OEDEMA [None]
  - OEDEMA PERIPHERAL [None]
  - WEIGHT INCREASED [None]
